FAERS Safety Report 7214415-X (Version None)
Quarter: 2011Q1

REPORT INFORMATION
  Report Type: 
  Country: None (occurrence: None)
  Receive Date: 20110107
  Receipt Date: 20101230
  Transmission Date: 20110831
  Serious: Yes (Other)
  Sender: FDA-Public Use
  Company Number: PHHY2010CA82573

PATIENT
  Sex: Male

DRUGS (3)
  1. ANCEF [Concomitant]
     Dosage: 2 GRAM
     Route: 042
  2. ACLASTA [Suspect]
     Indication: OSTEOPOROSIS
     Dosage: UNK
  3. ACLASTA [Suspect]
     Dosage: UNK
     Dates: start: 20100113

REACTIONS (2)
  - CELLULITIS [None]
  - CENTRAL VENOUS CATHETERISATION [None]
